FAERS Safety Report 12286406 (Version 1)
Quarter: 2016Q2

REPORT INFORMATION
  Report Type: Spontaneous
  Country: US (occurrence: US)
  Receive Date: 20160420
  Receipt Date: 20160420
  Transmission Date: 20160815
  Serious: No
  Sender: FDA-Public Use
  Company Number: US-PFIZER INC-2016215063

PATIENT
  Age: 72 Year
  Sex: Female

DRUGS (8)
  1. DOXYCYCLINE HYCLATE. [Suspect]
     Active Substance: DOXYCYCLINE HYCLATE
     Indication: CHILLS
  2. DOXYCYCLINE HYCLATE. [Suspect]
     Active Substance: DOXYCYCLINE HYCLATE
     Indication: COUGH
  3. CEFTIN [Suspect]
     Active Substance: CEFUROXIME AXETIL
     Indication: CHILLS
  4. CEFTIN [Suspect]
     Active Substance: CEFUROXIME AXETIL
     Indication: COUGH
  5. CEFTIN [Suspect]
     Active Substance: CEFUROXIME AXETIL
     Indication: PYREXIA
  6. DOXYCYCLINE HYCLATE. [Suspect]
     Active Substance: DOXYCYCLINE HYCLATE
     Indication: NASOPHARYNGITIS
     Dosage: 100 MG, 2X/DAY (FOR 7 DAYS)
     Route: 048
     Dates: start: 2016
  7. DOXYCYCLINE HYCLATE. [Suspect]
     Active Substance: DOXYCYCLINE HYCLATE
     Indication: PYREXIA
  8. CEFTIN [Suspect]
     Active Substance: CEFUROXIME AXETIL
     Indication: NASOPHARYNGITIS
     Dosage: UNK
     Dates: start: 2016

REACTIONS (2)
  - Intentional product misuse [Unknown]
  - Drug ineffective [Unknown]

NARRATIVE: CASE EVENT DATE: 2016
